FAERS Safety Report 13968266 (Version 1)
Quarter: 2017Q3

REPORT INFORMATION
  Report Type: Spontaneous
  Country: US (occurrence: US)
  Receive Date: 20170914
  Receipt Date: 20170914
  Transmission Date: 20171128
  Serious: No
  Sender: FDA-Public Use
  Company Number: US-PERRIGO-16US023035

PATIENT
  Age: 59 Year
  Sex: Female
  Weight: 86.62 kg

DRUGS (2)
  1. MINOXIDIL. [Suspect]
     Active Substance: MINOXIDIL
     Indication: ALOPECIA
     Dosage: 2 ML, BID
     Route: 061
     Dates: start: 201606, end: 201607
  2. MINOXIDIL. [Suspect]
     Active Substance: MINOXIDIL
     Dosage: 2 ML, BID
     Route: 061
     Dates: start: 20161121, end: 20161221

REACTIONS (2)
  - Expired product administered [Recovered/Resolved]
  - Incorrect dose administered [Recovered/Resolved]

NARRATIVE: CASE EVENT DATE: 201606
